FAERS Safety Report 8017913-4 (Version None)
Quarter: 2012Q1

REPORT INFORMATION
  Report Type: 
  Country: None (occurrence: None)
  Receive Date: 20120103
  Receipt Date: 20111223
  Transmission Date: 20120608
  Serious: Yes (Other)
  Sender: FDA-Public Use
  Company Number: US-JNJFOC-20111212070

PATIENT

DRUGS (1)
  1. REMICADE [Suspect]
     Indication: PRODUCT USED FOR UNKNOWN INDICATION
     Dosage: FREQUENCY REPORTED AS ^8VQ6WEEKS^
     Route: 042
     Dates: start: 20090924

REACTIONS (1)
  - MYOCARDIAL INFARCTION [None]
